FAERS Safety Report 24119530 (Version 1)
Quarter: 2024Q3

REPORT INFORMATION
  Report Type: Report from Study
  Country: MX (occurrence: None)
  Receive Date: 20240722
  Receipt Date: 20240722
  Transmission Date: 20241017
  Serious: Yes (Other)
  Sender: ASTRAZENECA
  Company Number: 2020SE26719

PATIENT
  Age: 70 Year
  Sex: Female
  Weight: 55 kg

DRUGS (6)
  1. ESOMEPRAZOLE [Suspect]
     Active Substance: ESOMEPRAZOLE
     Indication: Gastrointestinal disorder
     Route: 048
     Dates: start: 2010
  2. HISTOFIL [Concomitant]
     Indication: Osteoporosis
  3. EILEN [Concomitant]
     Indication: Osteoporosis
  4. XARELTO [Concomitant]
     Active Substance: RIVAROXABAN
     Indication: Blood disorder
     Dates: start: 2011
  5. SERTRALINE [Concomitant]
     Active Substance: SERTRALINE HYDROCHLORIDE
  6. LIPITOR [Concomitant]
     Active Substance: ATORVASTATIN CALCIUM
     Indication: Vasodilatation

REACTIONS (6)
  - Prescribed overdose [Unknown]
  - Thrombosis [Unknown]
  - Cerebral infarction [Unknown]
  - Venous occlusion [Unknown]
  - Back pain [Unknown]
  - Glaucoma [Unknown]
